FAERS Safety Report 7474446-1 (Version None)
Quarter: 2011Q2

REPORT INFORMATION
  Report Type: 
  Country: None (occurrence: None)
  Receive Date: 20110512
  Receipt Date: 20110214
  Transmission Date: 20111010
  Serious: No
  Sender: FDA-Public Use
  Company Number: US-BAYER-2011-015378

PATIENT
  Age: 47 Year
  Sex: Male

DRUGS (3)
  1. MUCINEX [Concomitant]
  2. AVELOX [Suspect]
     Indication: INFLUENZA
     Dosage: 400 MG, QD
     Route: 048
     Dates: start: 20110210
  3. ZANTAC [Concomitant]

REACTIONS (3)
  - DIZZINESS [None]
  - NAUSEA [None]
  - ABDOMINAL PAIN UPPER [None]
